FAERS Safety Report 17632013 (Version 1)
Quarter: 2020Q2

REPORT INFORMATION
  Report Type: Spontaneous
  Country: US (occurrence: US)
  Receive Date: 20200403
  Receipt Date: 20200403
  Transmission Date: 20200713
  Serious: Yes (Disabling, Other)
  Sender: FDA-Public Use
  Company Number: None

PATIENT
  Age: 45 Year

DRUGS (6)
  1. DIAZEPAM. [Suspect]
     Active Substance: DIAZEPAM
  2. MORPHINE SULFATE IR [Suspect]
     Active Substance: MORPHINE SULFATE
     Indication: CERVICAL VERTEBRAL FRACTURE
     Dosage: ?          OTHER STRENGTH:100MG 60MG 30MG;QUANTITY:3 PILLS 5 PILLS;OTHER FREQUENCY:3 PILLS 5-TIMES;?
     Route: 048
     Dates: start: 1986, end: 201008
  3. MORPHINE SULFATE ER [Suspect]
     Active Substance: MORPHINE SULFATE
  4. ZOLPIDEM [Concomitant]
     Active Substance: ZOLPIDEM TARTRATE
  5. VITAMIN D [Concomitant]
     Active Substance: VITAMIN D NOS
  6. GABAPENTIN. [Concomitant]
     Active Substance: GABAPENTIN

REACTIONS (3)
  - Pain [None]
  - Neuropathy peripheral [None]
  - Burning sensation [None]

NARRATIVE: CASE EVENT DATE: 199808
